FAERS Safety Report 22168592 (Version 1)
Quarter: 2023Q2

REPORT INFORMATION
  Report Type: Spontaneous
  Country: US (occurrence: US)
  Receive Date: 20230403
  Receipt Date: 20230403
  Transmission Date: 20230722
  Serious: No
  Sender: FDA-Public Use
  Company Number: US-MYLANLABS-2023M1031456

PATIENT
  Sex: Male
  Weight: 88.45 kg

DRUGS (1)
  1. WIXELA INHUB [Suspect]
     Active Substance: FLUTICASONE PROPIONATE\SALMETEROL XINAFOATE
     Indication: Cough
     Dosage: UNK (250/50 MICROGRAM)
     Route: 055
     Dates: start: 202208

REACTIONS (1)
  - Oral candidiasis [Not Recovered/Not Resolved]
